FAERS Safety Report 8980633 (Version 2)
Quarter: 2013Q1

REPORT INFORMATION
  Report Type: Spontaneous
  Country: US (occurrence: US)
  Receive Date: 20121221
  Receipt Date: 20130117
  Transmission Date: 20140127
  Serious: Yes (Other)
  Sender: FDA-Public Use
  Company Number: US-JNJFOC-20121207515

PATIENT
  Sex: Female
  Weight: 64.41 kg

DRUGS (1)
  1. NUCYNTA IR [Suspect]
     Indication: PAIN
     Dosage: UPTO 4 TIMES A DAY
     Route: 048
     Dates: start: 201211, end: 2012

REACTIONS (8)
  - Headache [Recovered/Resolved]
  - Cerebrovascular accident [Recovered/Resolved]
  - Aphasia [Recovered/Resolved]
  - Drug ineffective [Unknown]
  - Confusional state [Recovered/Resolved]
  - Eating disorder [Recovered/Resolved]
  - Malaise [Recovered/Resolved]
  - Vomiting [Recovered/Resolved]
